FAERS Safety Report 9857667 (Version 1)
Quarter: 2014Q1

REPORT INFORMATION
  Report Type: Spontaneous
  Country: FR (occurrence: FR)
  Receive Date: 20140131
  Receipt Date: 20140131
  Transmission Date: 20141002
  Serious: Yes (Hospitalization, Other)
  Sender: FDA-Public Use
  Company Number: FR-ASTRAZENECA-2014SE05892

PATIENT
  Age: 15338 Day
  Sex: Female

DRUGS (10)
  1. INEXIUM [Suspect]
     Route: 048
     Dates: start: 20131121, end: 20131206
  2. DEPAKINE [Suspect]
     Route: 065
     Dates: start: 20131111, end: 20131207
  3. TAZOCILLINE [Suspect]
     Route: 042
     Dates: end: 20131123
  4. KEPPRA [Suspect]
     Route: 065
     Dates: start: 20131128, end: 20131207
  5. DUROGESIC [Suspect]
     Route: 062
     Dates: start: 20131201
  6. CIFLOX [Suspect]
     Route: 065
     Dates: end: 20131130
  7. MORPHINE [Concomitant]
  8. ACUPAN [Concomitant]
  9. LEXOMIL [Concomitant]
  10. UNFRACTIONNED HEPARIN [Concomitant]

REACTIONS (4)
  - Plasma cell myeloma [Unknown]
  - Renal failure [Unknown]
  - Anaemia [Unknown]
  - Thrombocytopenia [Recovered/Resolved]
